FAERS Safety Report 21394939 (Version 1)
Quarter: 2022Q3

REPORT INFORMATION
  Report Type: Spontaneous
  Country: PT (occurrence: PT)
  Receive Date: 20220930
  Receipt Date: 20220930
  Transmission Date: 20221027
  Serious: Yes (Hospitalization, Other)
  Sender: FDA-Public Use
  Company Number: PT-ViiV Healthcare Limited-PT2022GSK138793

PATIENT

DRUGS (7)
  1. DOLUTEGRAVIR [Suspect]
     Active Substance: DOLUTEGRAVIR
     Indication: HIV infection
     Dosage: UNK
  2. TENOFOVIR [Suspect]
     Active Substance: TENOFOVIR
     Indication: HIV infection
     Dosage: UNK
  3. EMTRICITABINE [Suspect]
     Active Substance: EMTRICITABINE
     Indication: HIV infection
     Dosage: UNK
  4. PYRIMETHAMINE [Concomitant]
     Active Substance: PYRIMETHAMINE
     Indication: Product used for unknown indication
     Dosage: UNK
  5. CLINDAMYCIN [Concomitant]
     Active Substance: CLINDAMYCIN
     Indication: Product used for unknown indication
     Dosage: UNK
  6. LEUCOVORIN CALCIUM [Concomitant]
     Active Substance: LEUCOVORIN CALCIUM
     Indication: Product used for unknown indication
     Dosage: UNK
  7. LEVETIRACETAM [Concomitant]
     Active Substance: LEVETIRACETAM
     Indication: Product used for unknown indication
     Dosage: UNK

REACTIONS (26)
  - Herpes zoster meningomyelitis [Recovering/Resolving]
  - Immune reconstitution inflammatory syndrome [Unknown]
  - Varicella zoster virus infection [Recovered/Resolved]
  - Herpes zoster infection neurological [Recovering/Resolving]
  - Myelopathy [Recovering/Resolving]
  - Abdominal pain [Unknown]
  - Hypoaesthesia [Not Recovered/Not Resolved]
  - Nausea [Unknown]
  - Vomiting [Unknown]
  - Muscular weakness [Unknown]
  - Paraplegia [Not Recovered/Not Resolved]
  - Spinal cord oedema [Recovering/Resolving]
  - Urinary retention [Unknown]
  - Pyrexia [Unknown]
  - Rash vesicular [Unknown]
  - Nuchal rigidity [Unknown]
  - Photophobia [Unknown]
  - Areflexia [Not Recovered/Not Resolved]
  - Reflexes abnormal [Not Recovered/Not Resolved]
  - Decreased vibratory sense [Not Recovered/Not Resolved]
  - Anaesthesia [Not Recovered/Not Resolved]
  - Pleocytosis [Recovered/Resolved]
  - Bladder dysfunction [Unknown]
  - Constipation [Unknown]
  - Musculoskeletal stiffness [Unknown]
  - Autonomic nervous system imbalance [Unknown]
